FAERS Safety Report 7313747-4 (Version None)
Quarter: 2011Q1

REPORT INFORMATION
  Report Type: 
  Country: None (occurrence: None)
  Receive Date: 20110216
  Receipt Date: 20110216
  Transmission Date: 20110831
  Serious: No
  Sender: FDA-Public Use
  Company Number: None

PATIENT
  Age: 31 Year
  Sex: Male
  Weight: 120.2032 kg

DRUGS (1)
  1. SUSTENNA 234 MG JANSSEN [Suspect]
     Indication: SCHIZOAFFECTIVE DISORDER
     Dosage: 1.5 ML OF 124 MG 1 PER MONTH IM
     Route: 030
     Dates: start: 20101118, end: 20110105

REACTIONS (3)
  - SCHIZOAFFECTIVE DISORDER [None]
  - DRUG INEFFECTIVE [None]
  - MENTAL IMPAIRMENT [None]
